FAERS Safety Report 18961406 (Version 1)
Quarter: 2021Q1

REPORT INFORMATION
  Report Type: Spontaneous
  Country: NL (occurrence: NL)
  Receive Date: 20210303
  Receipt Date: 20210303
  Transmission Date: 20210420
  Serious: Yes (Other)
  Sender: FDA-Public Use
  Company Number: NL-AUROBINDO-AUR-APL-2021-008847

PATIENT
  Age: 51 Year
  Sex: Female
  Weight: 62 kg

DRUGS (4)
  1. VENLAFAXINE PROLONGED RELEASED CAPSULES, HARD 150MG [Suspect]
     Active Substance: VENLAFAXINE HYDROCHLORIDE
     Indication: DEPRESSION
     Dosage: 300 MILLIGRAM, DAILY (150 MG TWICE A DAY)
     Route: 065
     Dates: start: 2005
  2. CLOZAPINE 100 MG TABLET [Suspect]
     Active Substance: CLOZAPINE
     Indication: SCHIZOPHRENIA
     Dosage: 600 MILLIGRAM, DAILY (ONCE A DAY 6 PIECES)
     Route: 065
     Dates: start: 1993
  3. METFORMIN [Concomitant]
     Active Substance: METFORMIN HYDROCHLORIDE
     Indication: DIABETES MELLITUS
     Dosage: 100 MILLIGRAM
     Route: 065
  4. ABILIFY [Suspect]
     Active Substance: ARIPIPRAZOLE
     Indication: SCHIZOPHRENIA
     Dosage: 40 MILLIGRAM, ONCE A DAY (20 MG TWICE A DAY)
     Route: 065
     Dates: start: 2009

REACTIONS (8)
  - Psychotic symptom [Not Recovered/Not Resolved]
  - Depersonalisation/derealisation disorder [Not Recovered/Not Resolved]
  - Diabetes mellitus [Recovered/Resolved]
  - Hallucination [Not Recovered/Not Resolved]
  - Depressive symptom [Not Recovered/Not Resolved]
  - Suspiciousness [Not Recovered/Not Resolved]
  - Weight increased [Recovered/Resolved]
  - Fear [Not Recovered/Not Resolved]

NARRATIVE: CASE EVENT DATE: 2010
